FAERS Safety Report 6491124-6 (Version None)
Quarter: 2009Q4

REPORT INFORMATION
  Report Type: 
  Country: None (occurrence: None)
  Receive Date: 20091211
  Receipt Date: 20091204
  Transmission Date: 20100525
  Serious: Yes (Hospitalization)
  Sender: FDA-Public Use
  Company Number: US-AMGEN-KDL378722

PATIENT
  Age: 48 Year
  Sex: Male
  Weight: 60.4 kg

DRUGS (4)
  1. PROCRIT [Suspect]
     Indication: ANAEMIA
     Route: 065
     Dates: start: 20091001
  2. RIBAVIRIN [Concomitant]
  3. PEGASYS [Concomitant]
  4. UNSPECIFIED MEDICATION [Concomitant]

REACTIONS (1)
  - HAEMOGLOBIN DECREASED [None]
